FAERS Safety Report 17124346 (Version 2)
Quarter: 2020Q1

REPORT INFORMATION
  Report Type: Spontaneous
  Country: US (occurrence: US)
  Receive Date: 20191206
  Receipt Date: 20200210
  Transmission Date: 20200409
  Serious: Yes (Hospitalization)
  Sender: FDA-Public Use
  Company Number: US-GLAXOSMITHKLINE-US2019218814

PATIENT
  Age: 86 Year
  Sex: Female
  Weight: 75 kg

DRUGS (1)
  1. INCRUSE ELLIPTA [Suspect]
     Active Substance: UMECLIDINIUM BROMIDE
     Indication: PRODUCT USED FOR UNKNOWN INDICATION
     Dosage: UNK
     Route: 065
     Dates: start: 20190121, end: 20191202

REACTIONS (1)
  - Dyspnoea [Unknown]

NARRATIVE: CASE EVENT DATE: 20191201
